FAERS Safety Report 7368668-8 (Version None)
Quarter: 2011Q1

REPORT INFORMATION
  Report Type: 
  Country: None (occurrence: None)
  Receive Date: 20110304
  Receipt Date: 20101029
  Transmission Date: 20110831
  Serious: Yes (Hospitalization, Other)
  Sender: FDA-Public Use
  Company Number: CLOF-1000680

PATIENT
  Age: 63 Year
  Sex: Female
  Weight: 119 kg

DRUGS (11)
  1. CYTARABINE [Suspect]
     Indication: ACUTE MYELOID LEUKAEMIA
     Dosage: 1 G/M2, QDX5
     Dates: start: 20090818, end: 20090822
  2. ALLOPURINOL [Concomitant]
  3. AMILORIDE (AMILORIDE) [Concomitant]
  4. VANCOMYCIN [Concomitant]
  5. INSULIN ASPART (INSULIN ASPART) [Concomitant]
  6. CLOFARABINE [Suspect]
     Indication: ACUTE MYELOID LEUKAEMIA
     Dosage: 40 MG/M2, QDX5, INTRAVENOUS
     Route: 042
     Dates: start: 20090818, end: 20090822
  7. CEFEPIME [Concomitant]
  8. NEUPOGEN [Concomitant]
  9. HYDROMORPHONE (HYDROMORPHONE) [Concomitant]
  10. MEROPENEM [Concomitant]
  11. ENALAPRIL MALEATE [Concomitant]

REACTIONS (4)
  - GASTROINTESTINAL HAEMORRHAGE [None]
  - ENCEPHALOPATHY [None]
  - EXFOLIATIVE RASH [None]
  - RENAL FAILURE [None]
